FAERS Safety Report 4350027-3 (Version None)
Quarter: 2004Q2

REPORT INFORMATION
  Report Type: 
  Country: None (occurrence: None)
  Receive Date: 20040429
  Receipt Date: 20040419
  Transmission Date: 20050107
  Serious: Yes (Other)
  Sender: FDA-Public Use
  Company Number: JP-BRISTOL-MYERS SQUIBB COMPANY-12564415

PATIENT
  Age: 78 Year
  Sex: Female

DRUGS (1)
  1. HYDREA [Suspect]
     Indication: POLYCYTHAEMIA VERA
     Route: 048
     Dates: end: 20030506

REACTIONS (1)
  - MELAENA [None]
